FAERS Safety Report 15473601 (Version 1)
Quarter: 2018Q4

REPORT INFORMATION
  Report Type: Spontaneous
  Country: US (occurrence: US)
  Receive Date: 20181008
  Receipt Date: 20181008
  Transmission Date: 20190205
  Serious: No
  Sender: FDA-Public Use
  Company Number: US-GLAXOSMITHKLINE-US2018179310

PATIENT
  Sex: Male

DRUGS (1)
  1. VENTOLIN HFA [Suspect]
     Active Substance: ALBUTEROL SULFATE
     Indication: OXYGEN SATURATION DECREASED
     Dosage: 2 PUFF(S), QID
     Route: 055
     Dates: start: 20180928

REACTIONS (2)
  - Wrong technique in device usage process [Unknown]
  - Underdose [Unknown]
